FAERS Safety Report 8154802-9 (Version None)
Quarter: 2012Q1

REPORT INFORMATION
  Report Type: 
  Country: None (occurrence: None)
  Receive Date: 20120221
  Receipt Date: 20120209
  Transmission Date: 20120608
  Serious: Yes (Other)
  Sender: FDA-Public Use
  Company Number: PHHY2012DE012721

PATIENT

DRUGS (6)
  1. COLCHICINE [Concomitant]
     Dosage: UNK UKN, UNK
     Route: 064
  2. VALACICLOVIR [Concomitant]
     Dosage: UNK UKN, UNK
     Route: 064
  3. NAPROXEN [Concomitant]
     Dosage: UNK UKN, UNK
     Route: 064
  4. PREDNISOLONE [Concomitant]
     Dosage: UNK UKN, UNK
     Route: 064
  5. MYCOPHENOLATE MOFETIL [Suspect]
     Indication: IMMUNOGLOBULINS INCREASED
     Dosage: MATERNAL DOSE 1.44G/DAY
     Route: 064
  6. ABATACEPT [Concomitant]
     Dosage: UNK UKN, UNK
     Route: 064

REACTIONS (4)
  - DYSPLASIA [None]
  - PREMATURE BABY [None]
  - MENINGOCELE [None]
  - FOETAL EXPOSURE DURING PREGNANCY [None]
